FAERS Safety Report 8975694 (Version 1)
Quarter: 2012Q4

REPORT INFORMATION
  Report Type: 
  Country: US (occurrence: US)
  Receive Date: 20121219
  Receipt Date: 20121219
  Transmission Date: 20130627
  Serious: No
  Sender: FDA-Public Use
  Company Number: US-BAYER-2012-124452

PATIENT
  Sex: Female

DRUGS (2)
  1. NEXAVAR [Suspect]
     Dosage: 800 mg, UNK
     Dates: start: 201208
  2. NEXAVAR [Suspect]
     Dosage: 400 mg, UNK

REACTIONS (5)
  - Blister [None]
  - Dry skin [None]
  - Blood blister [None]
  - Productive cough [None]
  - Gastric disorder [None]
